FAERS Safety Report 6500127-4 (Version None)
Quarter: 2009Q4

REPORT INFORMATION
  Report Type: 
  Country: None (occurrence: None)
  Receive Date: 20091214
  Receipt Date: 20091214
  Transmission Date: 20100525
  Serious: Yes (Hospitalization)
  Sender: FDA-Public Use
  Company Number: None

PATIENT
  Age: 68 Year
  Sex: Male
  Weight: 120.88 kg

DRUGS (1)
  1. IRON SUCROSE [Suspect]
     Indication: ANAEMIA
     Dates: start: 20090805, end: 20090831

REACTIONS (2)
  - HYPERHIDROSIS [None]
  - PYREXIA [None]
